FAERS Safety Report 23083205 (Version 3)
Quarter: 2023Q4

REPORT INFORMATION
  Report Type: Report from Study
  Country: US (occurrence: US)
  Receive Date: 20231019
  Receipt Date: 20231225
  Transmission Date: 20240109
  Serious: Yes (Other)
  Sender: FDA-Public Use
  Company Number: US-ABBVIE-5456719

PATIENT
  Sex: Female

DRUGS (2)
  1. VENCLEXTA [Suspect]
     Active Substance: VENETOCLAX
     Indication: Chronic lymphocytic leukaemia
     Dosage: WITH FOOD AND A FULL GLASS OF WATER.?FORM STRENGTH WAS 100 MILLIGRAM.
     Route: 048
     Dates: end: 202311
  2. VENCLEXTA [Suspect]
     Active Substance: VENETOCLAX
     Indication: Chronic lymphocytic leukaemia
     Dosage: FORM STRENGTH WAS 100 MILLIGRAM.
     Route: 048
     Dates: start: 202311

REACTIONS (5)
  - Haemorrhage [Unknown]
  - Fatigue [Unknown]
  - Dyspnoea [Unknown]
  - Urinary tract infection [Unknown]
  - Joint swelling [Not Recovered/Not Resolved]

NARRATIVE: CASE EVENT DATE: 20230101
